FAERS Safety Report 8420280-5 (Version None)
Quarter: 2012Q2

REPORT INFORMATION
  Report Type: 
  Country: None (occurrence: None)
  Receive Date: 20120607
  Receipt Date: 20120530
  Transmission Date: 20120825
  Serious: Yes (Hospitalization, Disabling, Other)
  Sender: FDA-Public Use
  Company Number: IN-JNJFOC-20120503465

PATIENT

DRUGS (1)
  1. RIVAROXABAN [Suspect]
     Indication: KNEE ARTHROPLASTY
     Route: 048

REACTIONS (2)
  - SPINAL CORD HAEMORRHAGE [None]
  - PARAPLEGIA [None]
